FAERS Safety Report 8837396 (Version 1)
Quarter: 2012Q4

REPORT INFORMATION
  Report Type: Spontaneous
  Country: US (occurrence: None)
  Receive Date: 20121011
  Receipt Date: 20121011
  Transmission Date: 20130627
  Serious: Yes (Death, Life-Threatening, Hospitalization)
  Sender: FDA-Public Use
  Company Number: None

PATIENT
  Age: 67 Year
  Sex: Female

DRUGS (1)
  1. CEFEPIME [Suspect]
     Route: 040
     Dates: start: 20120118, end: 20120204

REACTIONS (9)
  - Mental status changes [None]
  - Cellulitis [None]
  - Osteomyelitis [None]
  - Aphasia [None]
  - Confusional state [None]
  - Myoclonus [None]
  - Renal failure [None]
  - Status epilepticus [None]
  - Condition aggravated [None]
